FAERS Safety Report 7520262-1 (Version None)
Quarter: 2011Q2

REPORT INFORMATION
  Report Type: 
  Country: None (occurrence: None)
  Receive Date: 20110602
  Receipt Date: 20110518
  Transmission Date: 20111010
  Serious: Yes (Congenital Anomaly)
  Sender: FDA-Public Use
  Company Number: SE-WATSON-2011-07477

PATIENT

DRUGS (2)
  1. FLUPENTIXOL [Concomitant]
  2. ZOLPIDEM TARTRATE (UNKNOWN) [Suspect]
     Indication: DRUG EXPOSURE DURING PREGNANCY
     Dosage: UNK
     Route: 064

REACTIONS (2)
  - CONGENITAL CYSTIC KIDNEY DISEASE [None]
  - VITELLO-INTESTINAL DUCT REMNANT [None]
